FAERS Safety Report 24460623 (Version 1)
Quarter: 2024Q4

REPORT INFORMATION
  Report Type: Report from Study
  Country: JP (occurrence: JP)
  Receive Date: 20241018
  Receipt Date: 20241018
  Transmission Date: 20250114
  Serious: No
  Sender: ROCHE
  Company Number: JP-ROCHE-3572493

PATIENT
  Age: 68 Year
  Sex: Male
  Weight: 85.0 kg

DRUGS (31)
  1. RITUXAN [Suspect]
     Active Substance: RITUXIMAB
     Indication: Diffuse large B-cell lymphoma stage I
     Route: 041
     Dates: start: 20230921, end: 20230921
  2. RITUXAN [Suspect]
     Active Substance: RITUXIMAB
     Route: 042
     Dates: start: 20231027, end: 20231027
  3. RITUXAN [Suspect]
     Active Substance: RITUXIMAB
     Route: 042
     Dates: start: 20231120, end: 20231120
  4. RITUXAN [Suspect]
     Active Substance: RITUXIMAB
     Route: 042
     Dates: start: 20231211, end: 20231211
  5. RITUXAN [Suspect]
     Active Substance: RITUXIMAB
     Route: 042
     Dates: start: 20240115, end: 20240115
  6. RITUXAN [Suspect]
     Active Substance: RITUXIMAB
     Route: 042
     Dates: start: 20240205, end: 20240205
  7. POLIVY [Suspect]
     Active Substance: POLATUZUMAB VEDOTIN-PIIQ
     Indication: Diffuse large B-cell lymphoma stage I
     Route: 042
     Dates: start: 20230920, end: 20230920
  8. POLIVY [Suspect]
     Active Substance: POLATUZUMAB VEDOTIN-PIIQ
     Route: 042
     Dates: start: 20231027, end: 20231027
  9. POLIVY [Suspect]
     Active Substance: POLATUZUMAB VEDOTIN-PIIQ
     Route: 042
     Dates: start: 20231120, end: 20231120
  10. POLIVY [Suspect]
     Active Substance: POLATUZUMAB VEDOTIN-PIIQ
     Route: 042
     Dates: start: 20231211, end: 20231211
  11. POLIVY [Suspect]
     Active Substance: POLATUZUMAB VEDOTIN-PIIQ
     Route: 042
     Dates: start: 20240115, end: 20240115
  12. POLIVY [Suspect]
     Active Substance: POLATUZUMAB VEDOTIN-PIIQ
     Route: 042
     Dates: start: 20240205, end: 20240205
  13. CYCLOPHOSPHAMIDE [Suspect]
     Active Substance: CYCLOPHOSPHAMIDE
     Indication: Diffuse large B-cell lymphoma stage I
     Route: 042
     Dates: start: 20230920, end: 20230920
  14. CYCLOPHOSPHAMIDE [Suspect]
     Active Substance: CYCLOPHOSPHAMIDE
     Route: 042
     Dates: start: 20231027, end: 20231027
  15. CYCLOPHOSPHAMIDE [Suspect]
     Active Substance: CYCLOPHOSPHAMIDE
     Route: 042
     Dates: start: 20231120, end: 20231120
  16. CYCLOPHOSPHAMIDE [Suspect]
     Active Substance: CYCLOPHOSPHAMIDE
     Route: 042
     Dates: start: 20231211, end: 20231211
  17. CYCLOPHOSPHAMIDE [Suspect]
     Active Substance: CYCLOPHOSPHAMIDE
     Route: 042
     Dates: start: 20240115, end: 20240115
  18. CYCLOPHOSPHAMIDE [Suspect]
     Active Substance: CYCLOPHOSPHAMIDE
     Route: 042
     Dates: start: 20240205, end: 20240205
  19. DOXORUBICIN HYDROCHLORIDE [Suspect]
     Active Substance: DOXORUBICIN HYDROCHLORIDE
     Indication: Diffuse large B-cell lymphoma stage I
     Route: 042
     Dates: start: 20230920, end: 20230920
  20. DOXORUBICIN HYDROCHLORIDE [Suspect]
     Active Substance: DOXORUBICIN HYDROCHLORIDE
     Dosage: SUBSEQUENTLY 27/OCT/2023, 20/NOV/2023, 11/DEC/2023, 15/JAN/2024, 05/FEB/2024
     Route: 042
     Dates: start: 20231027, end: 20231027
  21. DOXORUBICIN HYDROCHLORIDE [Suspect]
     Active Substance: DOXORUBICIN HYDROCHLORIDE
     Dosage: SUBSEQUENTLY 27/OCT/2023, 20/NOV/2023, 11/DEC/2023, 15/JAN/2024, 05/FEB/2024
     Route: 042
     Dates: start: 20231120, end: 20231120
  22. DOXORUBICIN HYDROCHLORIDE [Suspect]
     Active Substance: DOXORUBICIN HYDROCHLORIDE
     Dosage: SUBSEQUENTLY 27/OCT/2023, 20/NOV/2023, 11/DEC/2023, 15/JAN/2024, 05/FEB/2024
     Route: 042
     Dates: start: 20231211, end: 20231211
  23. DOXORUBICIN HYDROCHLORIDE [Suspect]
     Active Substance: DOXORUBICIN HYDROCHLORIDE
     Dosage: SUBSEQUENTLY 27/OCT/2023, 20/NOV/2023, 11/DEC/2023, 15/JAN/2024, 05/FEB/2024
     Route: 042
     Dates: start: 20240115, end: 20240115
  24. DOXORUBICIN HYDROCHLORIDE [Suspect]
     Active Substance: DOXORUBICIN HYDROCHLORIDE
     Dosage: SUBSEQUENTLY 27/OCT/2023, 20/NOV/2023, 11/DEC/2023, 15/JAN/2024, 05/FEB/2024
     Route: 042
     Dates: start: 20240205, end: 20240205
  25. PREDNISOLONE [Suspect]
     Active Substance: PREDNISOLONE
     Indication: Diffuse large B-cell lymphoma stage I
     Route: 048
     Dates: start: 20230920, end: 20230921
  26. PREDNISOLONE [Suspect]
     Active Substance: PREDNISOLONE
     Dosage: SUBSEQUENTLY 27/OCT/2023, 20/NOV/2023, 11/DEC/2023, 15/JAN/2024, 05/FEB/2024
     Route: 048
     Dates: start: 20231027, end: 20231031
  27. PREDNISOLONE [Suspect]
     Active Substance: PREDNISOLONE
     Dosage: SUBSEQUENTLY 27/OCT/2023, 20/NOV/2023, 11/DEC/2023, 15/JAN/2024, 05/FEB/2024
     Route: 048
     Dates: start: 20231120, end: 20231124
  28. PREDNISOLONE [Suspect]
     Active Substance: PREDNISOLONE
     Dosage: SUBSEQUENTLY 27/OCT/2023, 20/NOV/2023, 11/DEC/2023, 15/JAN/2024, 05/FEB/2024
     Route: 048
     Dates: start: 20231211, end: 20231215
  29. PREDNISOLONE [Suspect]
     Active Substance: PREDNISOLONE
     Dosage: SUBSEQUENTLY 27/OCT/2023, 20/NOV/2023, 11/DEC/2023, 15/JAN/2024, 05/FEB/2024
     Route: 048
     Dates: start: 20240115, end: 20240119
  30. PREDNISOLONE [Suspect]
     Active Substance: PREDNISOLONE
     Dosage: SUBSEQUENTLY 27/OCT/2023, 20/NOV/2023, 11/DEC/2023, 15/JAN/2024, 05/FEB/2024
     Route: 048
     Dates: start: 20240205, end: 20240209
  31. PEGFILGRASTIM [Concomitant]
     Active Substance: PEGFILGRASTIM
     Route: 058

REACTIONS (1)
  - Folliculitis [Recovered/Resolved]

NARRATIVE: CASE EVENT DATE: 20231016
